FAERS Safety Report 5578147-6 (Version None)
Quarter: 2007Q4

REPORT INFORMATION
  Report Type: 
  Country: None (occurrence: None)
  Receive Date: 20071227
  Receipt Date: 20071218
  Transmission Date: 20080405
  Serious: Yes (Hospitalization)
  Sender: FDA-Public Use
  Company Number: 2007002485

PATIENT
  Age: 64 Year
  Sex: Female

DRUGS (1)
  1. ERLOTINIB (ERLOTINIB HCL) (TABLET) (ERLOTINIB HCL) [Suspect]
     Indication: NON-SMALL CELL LUNG CANCER
     Dosage: (150 MG,QD), ORAL
     Route: 048
     Dates: start: 20070514

REACTIONS (3)
  - INTERNATIONAL NORMALISED RATIO INCREASED [None]
  - PROTHROMBIN TIME PROLONGED [None]
  - PULMONARY EMBOLISM [None]
